FAERS Safety Report 26044779 (Version 2)
Quarter: 2025Q4

REPORT INFORMATION
  Report Type: Report from Study
  Country: EU (occurrence: EU)
  Receive Date: 20251114
  Receipt Date: 20251125
  Transmission Date: 20260117
  Serious: Yes (Other)
  Sender: JOHNSON AND JOHNSON
  Company Number: EU-JNJFOC-20251157951

PATIENT
  Age: 53 Year
  Sex: Male

DRUGS (2)
  1. ESKETAMINE [Suspect]
     Active Substance: ESKETAMINE
     Indication: Depression
     Dosage: 56 MG, ALSO ON 17-NOV-2023, 20-NOV-2023
     Route: 045
     Dates: start: 20231113, end: 20231124
  2. ESKETAMINE [Suspect]
     Active Substance: ESKETAMINE
     Dosage: 84 MG, ALSO ON 01-DEC-2023, 04-DEC-2023, 06-DEC-2023, 11-DEC-2023, 18-DEC-2023, 27-DEC-2023, 03-JAN-
     Route: 045
     Dates: start: 20231127, end: 20240221

REACTIONS (1)
  - Suicidal ideation [Recovered/Resolved]

NARRATIVE: CASE EVENT DATE: 20240221
